FAERS Safety Report 8897271 (Version 1)
Quarter: 2012Q4

REPORT INFORMATION
  Report Type: 
  Country: US (occurrence: US)
  Receive Date: 20121108
  Receipt Date: 20121108
  Transmission Date: 20130627
  Serious: Yes (Other)
  Sender: FDA-Public Use
  Company Number: US-AMGEN-USASP2012027247

PATIENT
  Age: 2 Year
  Sex: Female

DRUGS (5)
  1. ENBREL [Suspect]
     Indication: JUVENILE ARTHRITIS
     Dosage: 20 mg, q2wk
  2. PREDNISOLON                        /00016201/ [Concomitant]
     Dosage: UNK
  3. CYCLOPENTOLATE HCL [Concomitant]
     Dosage: UNK
     Route: 047
  4. METHOTREXATE [Concomitant]
     Dosage: UNK
  5. HUMIRA [Concomitant]
     Dosage: UNK

REACTIONS (2)
  - Uveitis [Not Recovered/Not Resolved]
  - Injection site pain [Not Recovered/Not Resolved]
